FAERS Safety Report 10061723 (Version 1)
Quarter: 2014Q2

REPORT INFORMATION
  Report Type: Report from Study
  Country: DE (occurrence: DE)
  Receive Date: 20140407
  Receipt Date: 20140407
  Transmission Date: 20141212
  Serious: Yes (Other)
  Sender: FDA-Public Use
  Company Number: DE-SA-2014SA040626

PATIENT
  Age: 50 Year
  Sex: Male
  Weight: 123 kg

DRUGS (9)
  1. MULTAQ [Suspect]
     Indication: ATRIAL FIBRILLATION
     Dates: start: 20120605
  2. PLATELET AGGREGATION INHIBITORS [Concomitant]
  3. RAMIPRIL [Concomitant]
  4. METFORMIN [Concomitant]
  5. SIMVASTATIN [Concomitant]
  6. INSULIN HUMAN [Concomitant]
  7. ACTRAPHANE [Concomitant]
  8. VIT K ANTAGONISTS [Concomitant]
  9. AMIODARONE [Concomitant]

REACTIONS (1)
  - Atrial fibrillation [Unknown]
